FAERS Safety Report 5389768-8 (Version None)
Quarter: 2007Q3

REPORT INFORMATION
  Report Type: 
  Country: None (occurrence: None)
  Receive Date: 20070717
  Receipt Date: 20070712
  Transmission Date: 20080115
  Serious: Yes (Hospitalization)
  Sender: FDA-Public Use
  Company Number: FR-MERCK-0707FRA00033

PATIENT
  Age: 66 Year
  Sex: Male

DRUGS (7)
  1. PRIMAXIN [Suspect]
     Route: 042
     Dates: start: 20070611, end: 20070614
  2. METRONIDAZOLE [Concomitant]
     Route: 042
     Dates: start: 20070611
  3. ESOMEPRAZOLE MAGNESIUM [Concomitant]
     Route: 042
     Dates: start: 20070601
  4. ACETAMINOPHEN [Concomitant]
     Route: 042
     Dates: start: 20070601
  5. ENOXAPARIN SODIUM [Concomitant]
     Route: 030
     Dates: start: 20070529
  6. SODIUM POLYSTYRENE SULFONATE [Concomitant]
     Route: 048
  7. AMIKACIN SULFATE [Concomitant]
     Route: 042
     Dates: start: 20070611

REACTIONS (4)
  - ANAEMIA [None]
  - LEUKOPENIA [None]
  - LYMPHOPENIA [None]
  - NEUTROPENIA [None]
